FAERS Safety Report 21155803 (Version 1)
Quarter: 2022Q3

REPORT INFORMATION
  Report Type: Spontaneous
  Country: US (occurrence: None)
  Receive Date: 20220801
  Receipt Date: 20220801
  Transmission Date: 20221027
  Serious: No
  Sender: FDA-Public Use
  Company Number: 2022A259613

PATIENT
  Age: 78 Year
  Sex: Female

DRUGS (4)
  1. BUDESONIDE\FORMOTEROL\GLYCOPYRRONIUM [Suspect]
     Active Substance: BUDESONIDE\FORMOTEROL\GLYCOPYRRONIUM
     Indication: Chronic obstructive pulmonary disease
     Dosage: 2 PUFFS ONCE DAILY
     Route: 055
  2. TRELEGY ELLIPTA [Concomitant]
     Active Substance: FLUTICASONE FUROATE\UMECLIDINIUM BROMIDE\VILANTEROL TRIFENATATE
  3. ALBUTEROL [Concomitant]
     Active Substance: ALBUTEROL
  4. ELIQUIS [Concomitant]
     Active Substance: APIXABAN
     Indication: Atrial fibrillation

REACTIONS (14)
  - Palpitations [Unknown]
  - Palpitations [Unknown]
  - Dizziness [Recovered/Resolved]
  - Dizziness [Unknown]
  - Insomnia [Recovered/Resolved]
  - Gait disturbance [Unknown]
  - Herpes simplex [Unknown]
  - Illness [Unknown]
  - Constipation [Recovered/Resolved]
  - Pulmonary function test abnormal [Unknown]
  - Dyspnoea [Unknown]
  - Gastrointestinal disorder [Unknown]
  - Drug ineffective [Unknown]
  - Device use issue [Recovered/Resolved]

NARRATIVE: CASE EVENT DATE: 20220101
